FAERS Safety Report 7954304-6 (Version None)
Quarter: 2011Q4

REPORT INFORMATION
  Report Type: 
  Country: None (occurrence: None)
  Receive Date: 20111202
  Receipt Date: 20111122
  Transmission Date: 20120403
  Serious: Yes (Disabling)
  Sender: FDA-Public Use
  Company Number: JP-NAPPMUNDI-MAG-2011-0001800

PATIENT
  Age: 82 Year
  Sex: Male

DRUGS (8)
  1. TEGRETOL [Suspect]
     Indication: ANALGESIC THERAPY
     Dosage: 100 MG, DAILY
     Route: 048
     Dates: start: 20111006, end: 20111020
  2. PRORENAL [Concomitant]
     Indication: VASCULAR INSUFFICIENCY
     Dosage: 15 MCG, DAILY
     Route: 048
     Dates: start: 20111019
  3. CYMBALTA [Suspect]
     Indication: DEPRESSION
     Dosage: 20 MG, DAILY
     Route: 048
     Dates: start: 20111006, end: 20111020
  4. VOLTAREN [Suspect]
     Indication: ANALGESIC THERAPY
     Dosage: UNK
     Route: 054
     Dates: start: 20111006
  5. NEUROTROPIN                        /00398601/ [Concomitant]
     Indication: ANALGESIC THERAPY
     Dosage: 4 DF, DAILY
     Route: 048
     Dates: start: 20111006, end: 20111020
  6. LYRICA [Suspect]
     Indication: ANALGESIC THERAPY
     Dosage: 50 MG, DAILY
     Route: 062
     Dates: start: 20111006, end: 20111020
  7. BUPRENORPHINE [Suspect]
     Indication: ANALGESIC THERAPY
     Dosage: 5 MCG, Q1H
     Route: 062
     Dates: start: 20111006, end: 20111012
  8. TRAMADOL HYDROCHLORIDE/ACETAMINOPHEN [Suspect]
     Indication: ANALGESIC THERAPY
     Dosage: UNK
     Route: 048
     Dates: start: 20111006

REACTIONS (3)
  - SCHIZOPHRENIFORM DISORDER [None]
  - HALLUCINATION [None]
  - ABNORMAL BEHAVIOUR [None]
